FAERS Safety Report 8437395-8 (Version None)
Quarter: 2012Q2

REPORT INFORMATION
  Report Type: 
  Country: None (occurrence: None)
  Receive Date: 20120614
  Receipt Date: 20120316
  Transmission Date: 20120825
  Serious: No
  Sender: FDA-Public Use
  Company Number: US-AMGEN-USASP2012015570

PATIENT
  Age: 49 Year
  Sex: Female
  Weight: 50 kg

DRUGS (6)
  1. LEVOXYL [Concomitant]
     Indication: HYPOTHYROIDISM
     Dosage: 50 MG, QD
     Route: 048
     Dates: start: 20061114
  2. LIDODERM [Concomitant]
     Indication: HIATUS HERNIA
     Dosage: 5 %, QD
     Route: 061
     Dates: start: 20090219
  3. LORAZEPAM [Concomitant]
     Indication: INSOMNIA
     Dosage: 1 MG, QHS
     Route: 048
     Dates: start: 20090219
  4. PREVACID [Concomitant]
     Indication: HIATUS HERNIA
     Dosage: 30 MG, QD
     Route: 048
     Dates: start: 20090219
  5. PROLIA [Suspect]
     Indication: OSTEOPOROSIS POSTMENOPAUSAL
     Dosage: UNK
     Dates: start: 20120119
  6. HYDROCHLOROTHIAZIDE [Concomitant]
     Indication: HYPERTENSION
     Dosage: 25 MG, QD
     Route: 048
     Dates: start: 20071220

REACTIONS (12)
  - DRY SKIN [None]
  - STOMATITIS [None]
  - ABDOMINAL DISTENSION [None]
  - URINARY TRACT INFECTION [None]
  - SKIN HAEMORRHAGE [None]
  - HYPOTENSION [None]
  - PAIN IN EXTREMITY [None]
  - SKIN FISSURES [None]
  - ORAL MUCOSAL DISCOLOURATION [None]
  - VAGINAL HAEMORRHAGE [None]
  - PAIN IN JAW [None]
  - NAUSEA [None]
